FAERS Safety Report 9994987 (Version 40)
Quarter: 2018Q1

REPORT INFORMATION
  Report Type: Report from Study
  Country: CA (occurrence: CA)
  Receive Date: 20140311
  Receipt Date: 20180122
  Transmission Date: 20180509
  Serious: Yes (Hospitalization, Other)
  Sender: FDA-Public Use
  Company Number: PHHY2014CA021608

PATIENT
  Age: 59 Year
  Sex: Female

DRUGS (3)
  1. ZOMETA [Suspect]
     Active Substance: ZOLEDRONIC ACID
     Indication: BREAST CANCER
     Dosage: 4 MG, QMO EVERY 4 WEEKS
     Route: 042
     Dates: start: 20140122
  2. ZOMETA [Suspect]
     Active Substance: ZOLEDRONIC ACID
     Dosage: 4 MG, QMO EVERY 4 WEEKS
     Route: 042
  3. ZOMETA [Suspect]
     Active Substance: ZOLEDRONIC ACID
     Dosage: 4 MG, QMO EVERY 4 WEEKS
     Route: 042

REACTIONS (17)
  - Asthma [Unknown]
  - Heart rate increased [Unknown]
  - Pancreatitis [Unknown]
  - Blood pressure systolic increased [Unknown]
  - Second primary malignancy [Unknown]
  - Blood pressure diastolic decreased [Unknown]
  - Eosinophil count increased [Unknown]
  - Brain neoplasm [Unknown]
  - Oropharyngeal pain [Unknown]
  - Headache [Unknown]
  - Cellulitis [Recovered/Resolved]
  - Renal impairment [Unknown]
  - Animal scratch [Unknown]
  - Blood calcium decreased [Not Recovered/Not Resolved]
  - Cellulitis [Unknown]
  - Rash [Recovered/Resolved]
  - Blood chloride decreased [Unknown]

NARRATIVE: CASE EVENT DATE: 2014
